FAERS Safety Report 19520075 (Version 2)
Quarter: 2024Q1

REPORT INFORMATION
  Report Type: Spontaneous
  Country: US (occurrence: US)
  Receive Date: 20210712
  Receipt Date: 20240315
  Transmission Date: 20240410
  Serious: No
  Sender: FDA-Public Use
  Company Number: US-SECURA BIO, INC.-2020US008805

PATIENT

DRUGS (2)
  1. COPIKTRA [Suspect]
     Active Substance: DUVELISIB
     Indication: Cutaneous T-cell lymphoma
     Dosage: 25 MG, BID
     Route: 048
     Dates: start: 2020, end: 2020
  2. COPIKTRA [Suspect]
     Active Substance: DUVELISIB
     Dosage: 25 MG, BID
     Route: 048
     Dates: start: 2020, end: 202111

REACTIONS (7)
  - Erythema [Recovering/Resolving]
  - Skin haemorrhage [Recovering/Resolving]
  - Contusion [Recovering/Resolving]
  - Skin warm [Recovering/Resolving]
  - Blood blister [Recovering/Resolving]
  - Pruritus [Recovering/Resolving]
  - Off label use [Unknown]

NARRATIVE: CASE EVENT DATE: 20210801
